FAERS Safety Report 25606894 (Version 2)
Quarter: 2025Q3

REPORT INFORMATION
  Report Type: Spontaneous
  Country: EU (occurrence: EU)
  Receive Date: 20250725
  Receipt Date: 20250903
  Transmission Date: 20251021
  Serious: Yes (Other)
  Sender: RANBAXY
  Company Number: EU-AEMPS-1660856

PATIENT
  Age: 40 Year
  Sex: Female

DRUGS (9)
  1. CLOPIDOGREL [Suspect]
     Active Substance: CLOPIDOGREL BISULFATE
     Indication: Antiphospholipid syndrome
     Dosage: 75 MILLIGRAM, QD
     Route: 048
     Dates: start: 20190715, end: 20230310
  2. CANDESARTAN [Suspect]
     Active Substance: CANDESARTAN
     Indication: Migraine
     Dosage: 16 MILLIGRAM, QD
     Route: 048
     Dates: start: 20220615, end: 20230109
  3. AJOVY [Suspect]
     Active Substance: FREMANEZUMAB-VFRM
     Indication: Migraine
     Dosage: 675 MILLIGRAM, 3 MONTHLY
     Route: 058
     Dates: start: 20221011, end: 20230109
  4. TRAZODONE HYDROCHLORIDE [Suspect]
     Active Substance: TRAZODONE HYDROCHLORIDE
     Indication: Migraine
     Dosage: 100 MILLIGRAM, QD
     Route: 048
     Dates: start: 20220615, end: 20230313
  5. ALMOTRIPTAN [Suspect]
     Active Substance: ALMOTRIPTAN
     Indication: Migraine
     Route: 048
     Dates: start: 20200315, end: 20230313
  6. PAROXETINE [Suspect]
     Active Substance: PAROXETINE
     Indication: Migraine
     Dosage: 20 MILLIGRAM, QD
     Route: 048
     Dates: start: 20200315, end: 20230313
  7. AMITRIPTYLINE [Suspect]
     Active Substance: AMITRIPTYLINE
     Indication: Migraine
     Dosage: 10 MILLIGRAM, QD
     Route: 048
     Dates: start: 20200115, end: 20230313
  8. BOTULINUM TOXIN TYPE A [Suspect]
     Active Substance: BOTULINUM TOXIN TYPE A
     Indication: Migraine
     Dosage: 195 INTERNATIONAL UNIT, 3 MONTHLY
     Route: 058
     Dates: start: 20211025, end: 20230109
  9. NIMODIPINE [Suspect]
     Active Substance: NIMODIPINE
     Indication: Headache
     Dosage: 30 MILLIGRAM, TID
     Route: 048
     Dates: start: 20120715, end: 20230310

REACTIONS (2)
  - Abortion missed [Recovered/Resolved]
  - Maternal exposure during pregnancy [Unknown]

NARRATIVE: CASE EVENT DATE: 20230109
